FAERS Safety Report 7163812-X (Version None)
Quarter: 2010Q4

REPORT INFORMATION
  Report Type: 
  Country: None (occurrence: None)
  Receive Date: 20101215
  Receipt Date: 20100617
  Transmission Date: 20110411
  Serious: Yes (Death)
  Sender: FDA-Public Use
  Company Number: NL-PFIZER INC-2010072573

PATIENT
  Age: 65 Year
  Sex: Male
  Weight: 63 kg

DRUGS (4)
  1. LYRICA [Suspect]
     Indication: NEURALGIA
     Dosage: 75 MG, 2X/DAY
     Dates: start: 20100519
  2. FORTZAAR [Concomitant]
     Dosage: 125 ONCE A DAY
     Dates: start: 20080725
  3. CARBASALATE CALCIUM [Concomitant]
     Dosage: 100 MG, UNK
     Dates: start: 20060524
  4. SIMVASTATIN [Concomitant]
     Dosage: 20 MG, UNK
     Dates: start: 20060227

REACTIONS (2)
  - SEDATION [None]
  - VENTRICULAR FIBRILLATION [None]
